FAERS Safety Report 5136340-0 (Version None)
Quarter: 2006Q4

REPORT INFORMATION
  Report Type: 
  Country: None (occurrence: None)
  Receive Date: 20061027
  Receipt Date: 20061023
  Transmission Date: 20070319
  Serious: Yes (Death)
  Sender: FDA-Public Use
  Company Number: MX-BRACCO-BRO-010777

PATIENT
  Age: 56 Year
  Sex: Male

DRUGS (1)
  1. IOPAMIRON [Suspect]
     Indication: COMPUTERISED TOMOGRAM THORAX
     Route: 042
     Dates: start: 20060921, end: 20060921

REACTIONS (7)
  - CHILLS [None]
  - DEATH [None]
  - MEDICATION ERROR [None]
  - MYALGIA [None]
  - NAUSEA [None]
  - PYREXIA [None]
  - RENAL FAILURE ACUTE [None]
